FAERS Safety Report 4909432-6 (Version None)
Quarter: 2006Q1

REPORT INFORMATION
  Report Type: 
  Country: None (occurrence: None)
  Receive Date: 20060209
  Receipt Date: 20060209
  Transmission Date: 20060701
  Serious: Yes (Hospitalization)
  Sender: FDA-Public Use
  Company Number: None

PATIENT
  Age: 27 Year
  Sex: Male
  Weight: 80.7403 kg

DRUGS (6)
  1. FAZACLO 100 MG ALAMO PHARMACEUTICALS [Suspect]
     Indication: MENTAL DISORDER
     Dosage: 150 MG AM PO
     Route: 048
     Dates: start: 20051129, end: 20060207
  2. FAZACLO 25 MG ALAMO PHARMACEUTICALS [Suspect]
     Dosage: 450 MG HS PO
     Route: 048
  3. CLOZAPINE [Concomitant]
  4. FENOFIBRATE [Concomitant]
  5. SERTRALINE [Concomitant]
  6. DOCUSATE CALCIUM [Concomitant]

REACTIONS (1)
  - PULMONARY EMBOLISM [None]
